FAERS Safety Report 12799770 (Version 1)
Quarter: 2016Q3

REPORT INFORMATION
  Report Type: Report from Study
  Country: US (occurrence: US)
  Receive Date: 20160930
  Receipt Date: 20160930
  Transmission Date: 20161109
  Serious: No
  Sender: FDA-Public Use
  Company Number: PHEH2016US025027

PATIENT
  Sex: Female

DRUGS (1)
  1. GILENYA [Suspect]
     Active Substance: FINGOLIMOD HYDROCHLORIDE
     Indication: MULTIPLE SCLEROSIS
     Dosage: 0.5 MG, QD
     Route: 048
     Dates: start: 20160510

REACTIONS (7)
  - Dry eye [Unknown]
  - Limb discomfort [Unknown]
  - Muscular weakness [Unknown]
  - Feeling abnormal [Unknown]
  - Dry skin [Unknown]
  - Joint swelling [Unknown]
  - Vision blurred [Unknown]
